FAERS Safety Report 13740828 (Version 2)
Quarter: 2018Q4

REPORT INFORMATION
  Report Type: Spontaneous
  Country: CA (occurrence: CA)
  Receive Date: 20170711
  Receipt Date: 20181109
  Transmission Date: 20190204
  Serious: Yes (Disabling, Other)
  Sender: FDA-Public Use
  Company Number: CA-PFIZER INC-2017291832

PATIENT
  Age: 42 Year
  Sex: Female

DRUGS (3)
  1. SUMATRIPTAN SUCCINATE. [Suspect]
     Active Substance: SUMATRIPTAN SUCCINATE
     Indication: MIGRAINE
     Dosage: INJECTION FREQUENCY WAS APPROXIMATELY FOUR TO FIVE INJECTIONS PER WEEK
     Route: 030
  2. MEPERIDINE HCL [Suspect]
     Active Substance: MEPERIDINE HYDROCHLORIDE
     Indication: MIGRAINE
     Dosage: INJECTION FREQUENCY WAS APPROXIMATELY FOUR TO FIVE INJECTIONS PER WEEK
     Route: 030
  3. DIHYDROERGOTAMINE [Suspect]
     Active Substance: DIHYDROERGOTAMINE
     Indication: MIGRAINE
     Dosage: INJECTION FREQUENCY WAS APPROXIMATELY FOUR TO FIVE INJECTIONS PER WEEK
     Route: 030

REACTIONS (1)
  - Myopathy [Not Recovered/Not Resolved]
